FAERS Safety Report 13108675 (Version 1)
Quarter: 2017Q1

REPORT INFORMATION
  Report Type: Spontaneous
  Country: US (occurrence: US)
  Receive Date: 20170112
  Receipt Date: 20170112
  Transmission Date: 20170428
  Serious: No
  Sender: FDA-Public Use
  Company Number: US-BAYER-2017-002723

PATIENT
  Age: 52 Year
  Sex: Male
  Weight: 111 kg

DRUGS (1)
  1. MIRALAX [Suspect]
     Active Substance: POLYETHYLENE GLYCOL 3350
     Indication: GASTROINTESTINAL DISORDER
     Dosage: 2 DF, UNK
     Route: 048
     Dates: start: 20170104

REACTIONS (2)
  - Incorrect dose administered [Unknown]
  - Nocturia [Unknown]

NARRATIVE: CASE EVENT DATE: 20170104
